FAERS Safety Report 23582578 (Version 1)
Quarter: 2024Q1

REPORT INFORMATION
  Report Type: Report from Study
  Country: US (occurrence: US)
  Receive Date: 20240229
  Receipt Date: 20240229
  Transmission Date: 20240410
  Serious: Yes (Hospitalization)
  Sender: FDA-Public Use
  Company Number: US-ABBVIE-5658157

PATIENT
  Sex: Female

DRUGS (1)
  1. RINVOQ [Suspect]
     Active Substance: UPADACITINIB
     Indication: Rheumatoid arthritis
     Dosage: FORM STRENGTH: 15 MILLIGRAM?ONE TIME A DAY
     Route: 048
     Dates: start: 202312

REACTIONS (5)
  - Fall [Unknown]
  - Rib fracture [Unknown]
  - Clavicle fracture [Unknown]
  - Tendon rupture [Unknown]
  - Scapula fracture [Unknown]
